FAERS Safety Report 9929677 (Version 1)
Quarter: 2014Q1

REPORT INFORMATION
  Report Type: Spontaneous
  Country: DE (occurrence: DE)
  Receive Date: 20140227
  Receipt Date: 20140227
  Transmission Date: 20141002
  Serious: Yes (Other)
  Sender: FDA-Public Use
  Company Number: DE-MYLANLABS-2014S1003422

PATIENT
  Age: 1 Day
  Sex: Female
  Weight: 3.71 kg

DRUGS (3)
  1. LAMOTRIGINE [Suspect]
     Indication: BIPOLAR DISORDER
     Dosage: 300 [MG/D (3 X 100 MG/D) ]
     Route: 064
     Dates: start: 20120806, end: 20130509
  2. CITALOPRAM [Suspect]
     Indication: DEPRESSION
     Dosage: 30 [MG/D ]
     Route: 064
     Dates: start: 20120806, end: 20130509
  3. VELNATAL PLUS [Concomitant]
     Indication: PROPHYLAXIS OF NEURAL TUBE DEFECT
     Dosage: 0.4 [MG/D ]
     Route: 064

REACTIONS (4)
  - Exposure during pregnancy [Recovered/Resolved]
  - Neonatal infection [Recovered/Resolved]
  - Feeding disorder neonatal [Recovered/Resolved]
  - Somnolence [Recovered/Resolved]
